FAERS Safety Report 6762900-7 (Version None)
Quarter: 2010Q2

REPORT INFORMATION
  Report Type: 
  Country: None (occurrence: None)
  Receive Date: 20100609
  Receipt Date: 20100601
  Transmission Date: 20101027
  Serious: Yes (Other)
  Sender: FDA-Public Use
  Company Number: US-SANOFI-AVENTIS-2010SA031882

PATIENT
  Age: 72 Year
  Sex: Male
  Weight: 90 kg

DRUGS (16)
  1. TAXOTERE [Suspect]
     Indication: PROSTATE CANCER
     Route: 051
     Dates: start: 20100303, end: 20100303
  2. TAXOTERE [Suspect]
     Route: 051
     Dates: start: 20100415, end: 20100415
  3. PLACEBO [Suspect]
     Indication: PROSTATE CANCER
     Route: 048
     Dates: start: 20100303
  4. PLACEBO [Suspect]
     Route: 048
     Dates: start: 20100415, end: 20100425
  5. PREDNISONE [Suspect]
     Indication: PROSTATE CANCER
     Route: 048
     Dates: start: 20100415, end: 20100504
  6. PREDNISONE [Suspect]
     Route: 048
     Dates: start: 20100303
  7. ASPIRIN [Concomitant]
     Indication: PROPHYLAXIS
     Route: 048
     Dates: start: 20060101
  8. PLAVIX [Concomitant]
     Indication: PROPHYLAXIS
     Route: 048
     Dates: start: 20060101
  9. VALSARTAN [Concomitant]
     Indication: HYPERTENSION
     Route: 048
     Dates: start: 20060101
  10. ROSUVASTATIN [Concomitant]
     Route: 048
     Dates: start: 20060101
  11. LORTAB [Concomitant]
     Dosage: 7.5/500 Q 4-6 HOURS PRN
     Route: 048
     Dates: start: 20100204
  12. COMPAZINE [Concomitant]
     Route: 048
     Dates: start: 20100303
  13. KYTRIL [Concomitant]
     Route: 042
     Dates: start: 20100303
  14. DEXAMETHASONE [Concomitant]
     Dosage: THREE TIMES
     Route: 048
     Dates: start: 20100302
  15. CALCIUM WITH VITAMIN D [Concomitant]
     Route: 048
     Dates: start: 20100227
  16. ZOMETA [Concomitant]
     Indication: PROPHYLAXIS
     Route: 042
     Dates: start: 20100203

REACTIONS (2)
  - PANCREATIC PSEUDOCYST [None]
  - PANCREATITIS [None]
